FAERS Safety Report 7386698-7 (Version None)
Quarter: 2011Q1

REPORT INFORMATION
  Report Type: 
  Country: None (occurrence: None)
  Receive Date: 20110331
  Receipt Date: 20110329
  Transmission Date: 20110831
  Serious: Yes (Other)
  Sender: FDA-Public Use
  Company Number: US-PFIZER INC-2011070845

PATIENT
  Sex: Female

DRUGS (1)
  1. CHANTIX [Suspect]
     Dosage: UNK
     Dates: start: 20100201

REACTIONS (4)
  - ROAD TRAFFIC ACCIDENT [None]
  - HEAD INJURY [None]
  - LOSS OF CONSCIOUSNESS [None]
  - LIMB INJURY [None]
